FAERS Safety Report 20052500 (Version 3)
Quarter: 2024Q2

REPORT INFORMATION
  Report Type: Spontaneous
  Country: US (occurrence: US)
  Receive Date: 20211110
  Receipt Date: 20240626
  Transmission Date: 20240716
  Serious: No
  Sender: FDA-Public Use
  Company Number: US-SA-SAC20211107000084

PATIENT
  Age: 12 Year
  Sex: Female

DRUGS (1)
  1. DUPIXENT [Suspect]
     Active Substance: DUPILUMAB
     Dosage: 300 MG
     Route: 058

REACTIONS (3)
  - Scratch [Unknown]
  - Condition aggravated [Unknown]
  - Treatment delayed [Unknown]

NARRATIVE: CASE EVENT DATE: 20211102
